FAERS Safety Report 8249539-1 (Version None)
Quarter: 2012Q2

REPORT INFORMATION
  Report Type: 
  Country: None (occurrence: None)
  Receive Date: 20120402
  Receipt Date: 20120321
  Transmission Date: 20120825
  Serious: Yes (Hospitalization)
  Sender: FDA-Public Use
  Company Number: IT-SANOFI-AVENTIS-2012SA019661

PATIENT
  Age: 43 Year
  Sex: Female

DRUGS (5)
  1. ENOXAPARIN SODIUM [Suspect]
     Route: 058
  2. DELORAZEPAM [Suspect]
     Route: 065
  3. DELORAZEPAM [Suspect]
     Route: 065
  4. DELORAZEPAM [Suspect]
     Route: 065
  5. RISPERIDONE [Suspect]
     Route: 065

REACTIONS (13)
  - MUSCLE ATROPHY [None]
  - NEGATIVISM [None]
  - MUSCLE RIGIDITY [None]
  - DEHYDRATION [None]
  - IMMOBILE [None]
  - WAXY FLEXIBILITY [None]
  - DECREASED APPETITE [None]
  - POSTURING [None]
  - PYREXIA [None]
  - DEEP VEIN THROMBOSIS [None]
  - CATATONIA [None]
  - MUTISM [None]
  - DECUBITUS ULCER [None]
